FAERS Safety Report 4274719-X (Version None)
Quarter: 2004Q1

REPORT INFORMATION
  Report Type: 
  Country: None (occurrence: None)
  Receive Date: 20040120
  Receipt Date: 20030421
  Transmission Date: 20041129
  Serious: Yes (Hospitalization, Other)
  Sender: FDA-Public Use
  Company Number: US-BRISTOL-MYERS SQUIBB COMPANY-12256798

PATIENT
  Age: 34 Year
  Sex: Female
  Weight: 90 kg

DRUGS (20)
  1. STADOL [Suspect]
     Indication: MIGRAINE
     Route: 045
     Dates: start: 19960101, end: 19990101
  2. PRILOSEC [Concomitant]
  3. PROPULSID [Concomitant]
  4. ZOLOFT [Concomitant]
  5. LOESTRIN FE 1/20 [Concomitant]
     Indication: OVARIAN CYST
  6. LOESTRIN FE 1/20 [Concomitant]
     Indication: METRORRHAGIA
  7. ANAPROX [Concomitant]
     Dates: end: 19970101
  8. POLYCITRA [Concomitant]
  9. TORADOL [Concomitant]
  10. IMITREX [Concomitant]
  11. DARVOCET [Concomitant]
  12. SKELAXIN [Concomitant]
  13. IBUPROFEN [Concomitant]
  14. PEPCID [Concomitant]
  15. PERIACTIN [Concomitant]
  16. LORTAB [Concomitant]
  17. BELLERGAL-S [Concomitant]
  18. CALAN [Concomitant]
  19. ULTRAM [Concomitant]
  20. SOMA [Concomitant]

REACTIONS (7)
  - ALCOHOLISM [None]
  - DEPENDENCE [None]
  - DRUG EFFECT DECREASED [None]
  - DRUG TOLERANCE [None]
  - MAJOR DEPRESSION [None]
  - MIGRAINE [None]
  - SUICIDAL IDEATION [None]
